FAERS Safety Report 8215690-5 (Version None)
Quarter: 2012Q1

REPORT INFORMATION
  Report Type: 
  Country: None (occurrence: None)
  Receive Date: 20120316
  Receipt Date: 20120305
  Transmission Date: 20120608
  Serious: Yes (Hospitalization)
  Sender: FDA-Public Use
  Company Number: FR-PFIZER INC-2012062238

PATIENT
  Age: 56 Year
  Sex: Male

DRUGS (11)
  1. PRAZEPAM [Suspect]
     Dosage: 40 MG, 2X/DAY
     Route: 048
     Dates: end: 20111205
  2. ASPIRIN [Concomitant]
     Dosage: 160 MG, DAILY
     Route: 048
  3. CLONAZEPAM [Suspect]
     Dosage: 3 MG, DAILY
     Route: 048
     Dates: end: 20111205
  4. TRIMEPRAZINE TARTRATE [Concomitant]
     Dosage: 40 GTT, 3X/DAY
     Route: 048
  5. DIPIPERON [Suspect]
     Dosage: 1 IU, DAILY
     Route: 048
     Dates: end: 20111205
  6. ATARAX [Suspect]
     Dosage: 100 MG, DAILY
     Route: 048
     Dates: end: 20111205
  7. CORDARONE [Suspect]
     Dosage: 200 MG, DAILY
     Route: 048
     Dates: end: 20111205
  8. MEPRONIZINE [Suspect]
     Dosage: 1 IU, DAILY
     Route: 048
  9. TRANXENE [Concomitant]
     Dosage: 2 IU, DAILY
     Route: 048
  10. IXEL [Concomitant]
     Dosage: 50 MG, DAILY
     Route: 048
  11. BISOPROLOL FUMARATE [Suspect]
     Indication: ARRHYTHMIA
     Dosage: 1 IU, DAILY
     Route: 048
     Dates: end: 20111205

REACTIONS (4)
  - ORTHOSTATIC HYPOTENSION [None]
  - MALAISE [None]
  - HYPOTHYROIDISM [None]
  - EXTRAPYRAMIDAL DISORDER [None]
